FAERS Safety Report 10716106 (Version 1)
Quarter: 2015Q1

REPORT INFORMATION
  Report Type: Report from Study
  Country: US (occurrence: None)
  Receive Date: 20150109
  Receipt Date: 20150109
  Transmission Date: 20150721
  Serious: Yes (Hospitalization)
  Sender: FDA-Public Use
  Company Number: 2013PROUSA03187

PATIENT
  Age: 70 Year
  Sex: Male
  Weight: 82 kg

DRUGS (17)
  1. LANTUS [Concomitant]
     Active Substance: INSULIN GLARGINE
  2. XGEVA [Concomitant]
     Active Substance: DENOSUMAB
  3. ASPIRIN (ACETYLSALICYLIC ACID) [Concomitant]
     Active Substance: ASPIRIN
  4. ZYTIGA (ABIRATERONE ACETATE) [Concomitant]
  5. MULTIVITAMIN (VITAMINS NOS) [Concomitant]
     Active Substance: VITAMINS
  6. PROVENGE [Suspect]
     Active Substance: SIPULEUCEL-T
     Indication: PROSTATE CANCER METASTATIC
     Dosage: SINGLE
     Route: 042
     Dates: start: 20130829, end: 20130829
  7. CALCIUM D (CALCIUM CARBONATE, COLECALCIFEROL) [Concomitant]
  8. LANTUS [Concomitant]
     Active Substance: INSULIN GLARGINE
  9. PREDNISONE. [Concomitant]
     Active Substance: PREDNISONE
  10. SIMVASTATIN. [Concomitant]
     Active Substance: SIMVASTATIN
  11. HUMALOG [Concomitant]
     Active Substance: INSULIN LISPRO
  12. MEGACE ES (MEGESTROL ACETATE) [Concomitant]
  13. HYDROCORTISONE. [Concomitant]
     Active Substance: HYDROCORTISONE
  14. NIFEDIPINE. [Concomitant]
     Active Substance: NIFEDIPINE
  15. ATENOLOL. [Concomitant]
     Active Substance: ATENOLOL
  16. NORCO (HYDROCODONE BITARTRATE, PARACETAMOL) [Concomitant]
  17. ELIGARD (LEUPRORELIN ACETATE0 [Concomitant]

REACTIONS (1)
  - Device related sepsis [None]

NARRATIVE: CASE EVENT DATE: 20130927
